FAERS Safety Report 10738322 (Version 1)
Quarter: 2015Q1

REPORT INFORMATION
  Report Type: Spontaneous
  Country: US (occurrence: None)
  Receive Date: 20150122
  Receipt Date: 20150122
  Transmission Date: 20150721
  Serious: Yes (Hospitalization)
  Sender: FDA-Public Use
  Company Number: None

PATIENT
  Sex: Female
  Weight: 103.87 kg

DRUGS (1)
  1. BUPROPION (GENERIC WELLBUTRIN) 150 MG [Suspect]
     Active Substance: BUPROPION
     Indication: MAJOR DEPRESSION
     Route: 048
     Dates: start: 2011, end: 2015

REACTIONS (1)
  - Generalised tonic-clonic seizure [None]
